FAERS Safety Report 18931464 (Version 2)
Quarter: 2021Q2

REPORT INFORMATION
  Report Type: Report from Study
  Country: US (occurrence: US)
  Receive Date: 20210223
  Receipt Date: 20210507
  Transmission Date: 20210717
  Serious: Yes (Other)
  Sender: FDA-Public Use
  Company Number: US-EMD SERONO-9220113

PATIENT
  Sex: Female

DRUGS (3)
  1. REBIF [Suspect]
     Active Substance: INTERFERON BETA-1A
     Indication: MULTIPLE SCLEROSIS
     Route: 058
     Dates: start: 20141103
  2. 6?MERCAPTOPURINE MONOHYDRATE [Suspect]
     Active Substance: MERCAPTOPURINE
     Dosage: INCREASED DOSE OF 6MP
  3. 6?MERCAPTOPURINE MONOHYDRATE [Suspect]
     Active Substance: MERCAPTOPURINE
     Indication: AUTOIMMUNE HEPATITIS

REACTIONS (12)
  - Impaired work ability [Unknown]
  - Nonalcoholic fatty liver disease [Not Recovered/Not Resolved]
  - Multiple sclerosis [Unknown]
  - Multiple sclerosis relapse [Unknown]
  - Temperature intolerance [Unknown]
  - Fatigue [Unknown]
  - Autoimmune hepatitis [Unknown]
  - Immune system disorder [Unknown]
  - Red blood cell count decreased [Unknown]
  - Hangover [Unknown]
  - White blood cell count decreased [Unknown]
  - Hypersomnia [Unknown]
